FAERS Safety Report 17205634 (Version 1)
Quarter: 2019Q4

REPORT INFORMATION
  Report Type: Spontaneous
  Country: US (occurrence: US)
  Receive Date: 20191227
  Receipt Date: 20191227
  Transmission Date: 20200122
  Serious: No
  Sender: FDA-Public Use
  Company Number: US-TEVA-2019-US-1158843

PATIENT

DRUGS (3)
  1. METHYLPHENIDATE ACTAVIS [Suspect]
     Active Substance: METHYLPHENIDATE
     Route: 065
  2. METHYLPHENIDATE ACTAVIS 54 MG ER [Suspect]
     Active Substance: METHYLPHENIDATE
     Dosage: EXTENDED RELEASE
     Route: 065
  3. CONCERTA [Suspect]
     Active Substance: METHYLPHENIDATE HYDROCHLORIDE
     Route: 065

REACTIONS (1)
  - Drug ineffective [Unknown]
